FAERS Safety Report 5824369-6 (Version None)
Quarter: 2008Q3

REPORT INFORMATION
  Report Type: 
  Country: None (occurrence: None)
  Receive Date: 20080728
  Receipt Date: 20080205
  Transmission Date: 20090109
  Serious: No
  Sender: FDA-Public Use
  Company Number: US-BAYER-200810586BCC

PATIENT
  Age: 22 Year
  Sex: Female
  Weight: 93 kg

DRUGS (3)
  1. ALEVE (CAPLET) [Suspect]
     Indication: JOINT SWELLING
     Dosage: AS USED: 660 MG  UNIT DOSE: 220 MG
     Route: 048
     Dates: start: 20080205
  2. CLARITIN 24HR [Concomitant]
     Dosage: AS USED: 10 MG
     Route: 048
  3. ROBITUSSIN DM [Concomitant]
     Route: 048

REACTIONS (1)
  - SOMNOLENCE [None]
